FAERS Safety Report 10387911 (Version 1)
Quarter: 2014Q3

REPORT INFORMATION
  Report Type: Spontaneous
  Country: JP (occurrence: JP)
  Receive Date: 20140815
  Receipt Date: 20140815
  Transmission Date: 20150326
  Serious: No
  Sender: FDA-Public Use
  Company Number: PHHY2012JP134932

PATIENT
  Age: 28 Year
  Sex: Male

DRUGS (6)
  1. TASIGNA [Suspect]
     Active Substance: NILOTINIB
     Dates: start: 201208
  2. GLIVEC [Suspect]
     Active Substance: IMATINIB MESYLATE
     Indication: CHRONIC MYELOID LEUKAEMIA
     Dosage: 400 MG, UNK
     Dates: start: 201105
  3. TASIGNA [Suspect]
     Active Substance: NILOTINIB
     Dosage: 600 MG, UNK
     Dates: start: 20130912
  4. SPRYCEL [Concomitant]
     Active Substance: DASATINIB
     Dosage: 100 MG, UNK
  5. TASIGNA [Suspect]
     Active Substance: NILOTINIB
     Indication: CHRONIC MYELOID LEUKAEMIA
     Dosage: 600 MG, DAILY
     Dates: start: 201010
  6. SPRYCEL [Concomitant]
     Active Substance: DASATINIB
     Dosage: 400 MG, UNK
     Dates: start: 201304, end: 20130912

REACTIONS (4)
  - Blood bilirubin increased [Unknown]
  - Rash [Not Recovered/Not Resolved]
  - Headache [Recovered/Resolved]
  - Hepatic function abnormal [Recovered/Resolved]
